FAERS Safety Report 13286262 (Version 1)
Quarter: 2017Q1

REPORT INFORMATION
  Report Type: Spontaneous
  Country: US (occurrence: US)
  Receive Date: 20170302
  Receipt Date: 20170302
  Transmission Date: 20170428
  Serious: No
  Sender: FDA-Public Use
  Company Number: US-ALLERGAN-1000083885

PATIENT
  Age: 29 Year
  Sex: Male

DRUGS (3)
  1. VIIBRYD [Suspect]
     Active Substance: VILAZODONE HYDROCHLORIDE
     Dosage: UNK
  2. VIIBRYD [Suspect]
     Active Substance: VILAZODONE HYDROCHLORIDE
     Dosage: 20 MG, UNK
  3. VIIBRYD [Suspect]
     Active Substance: VILAZODONE HYDROCHLORIDE
     Dosage: 10 MG, QD

REACTIONS (8)
  - Aggression [Unknown]
  - Irritability [Unknown]
  - Abdominal distension [Unknown]
  - Off label use [Unknown]
  - Diarrhoea [Unknown]
  - Anger [Unknown]
  - Impulsive behaviour [Unknown]
  - Weight increased [Unknown]
